FAERS Safety Report 17025658 (Version 3)
Quarter: 2019Q4

REPORT INFORMATION
  Report Type: Spontaneous
  Country: US (occurrence: US)
  Receive Date: 20191113
  Receipt Date: 20191209
  Transmission Date: 20200122
  Serious: Yes (Hospitalization, Other)
  Sender: FDA-Public Use
  Company Number: US-PFIZER INC-2019486899

PATIENT
  Age: 73 Year
  Sex: Female
  Weight: 70.31 kg

DRUGS (6)
  1. CITALOPRAM [Concomitant]
     Active Substance: CITALOPRAM HYDROBROMIDE
     Indication: NEUROPATHY PERIPHERAL
     Dosage: 20 MG, DAILY
     Route: 048
  2. METOPROLOL. [Concomitant]
     Active Substance: METOPROLOL
     Indication: BLOOD PRESSURE ABNORMAL
     Dosage: 50 MG, 2X/DAY
     Route: 048
  3. XELJANZ XR [Suspect]
     Active Substance: TOFACITINIB CITRATE
     Indication: PSORIATIC ARTHROPATHY
     Dosage: 11 MG, DAILY
     Route: 048
  4. TRIAMTERENE + HCTZ [Concomitant]
     Active Substance: HYDROCHLOROTHIAZIDE\TRIAMTERENE
     Dosage: 1 DF, DAILY
     Route: 048
  5. CARBIDOPA AND LEVODOPA [Concomitant]
     Active Substance: CARBIDOPA\LEVODOPA
     Indication: PARKINSON^S DISEASE
     Dosage: 1 DF, 3X/DAY
     Route: 048
  6. LEVOTHYROXINE. [Concomitant]
     Active Substance: LEVOTHYROXINE
     Indication: HYPOTHYROIDISM
     Dosage: 50 UG, 1X/DAY
     Route: 048

REACTIONS (4)
  - Loss of consciousness [Recovering/Resolving]
  - Pain [Unknown]
  - Syncope [Recovering/Resolving]
  - Dizziness [Unknown]

NARRATIVE: CASE EVENT DATE: 20191203
